FAERS Safety Report 7036430-1 (Version None)
Quarter: 2010Q4

REPORT INFORMATION
  Report Type: 
  Country: None (occurrence: None)
  Receive Date: 20101010
  Receipt Date: 20100927
  Transmission Date: 20110411
  Serious: Yes (Death, Life-Threatening)
  Sender: FDA-Public Use
  Company Number: US-BRISTOL-MYERS SQUIBB COMPANY-15321201

PATIENT
  Sex: Male

DRUGS (10)
  1. EFAVIRENZ TABS [Suspect]
     Route: 048
  2. GLYBURIDE AND METFORMIN HYDROCHLORIDE [Suspect]
     Route: 065
  3. RITONAVIR [Suspect]
     Route: 065
  4. RALTEGRAVIR [Suspect]
     Dosage: TAB RALTEGRAVIR POTASSIUM
     Route: 048
  5. FOSAMPRENAVIR CALCIUM [Suspect]
     Route: 048
  6. SILDENAFIL CITRATE [Suspect]
     Dosage: SILDENAFIL CITRATE
     Route: 065
  7. MEPROBAMATE + ACEPROMETAZINE [Concomitant]
  8. RISPERIDONE [Concomitant]
  9. VENLAFAXINE HCL [Concomitant]
  10. ALPRAZOLAM [Concomitant]

REACTIONS (6)
  - DYSPNOEA [None]
  - HYPERLACTACIDAEMIA [None]
  - INSOMNIA [None]
  - METABOLIC ACIDOSIS [None]
  - SHOCK [None]
  - VENTRICULAR ARRHYTHMIA [None]
